FAERS Safety Report 18257690 (Version 1)
Quarter: 2020Q3

REPORT INFORMATION
  Report Type: Spontaneous
  Country: US (occurrence: US)
  Receive Date: 20200911
  Receipt Date: 20200911
  Transmission Date: 20201103
  Serious: Yes (Hospitalization)
  Sender: FDA-Public Use
  Company Number: None

PATIENT
  Sex: Female

DRUGS (16)
  1. CYMBALTA [Concomitant]
     Active Substance: DULOXETINE HYDROCHLORIDE
     Dates: start: 20190904
  2. GABAPENTIN. [Concomitant]
     Active Substance: GABAPENTIN
     Dates: start: 20190904
  3. LISINOPRIL. [Concomitant]
     Active Substance: LISINOPRIL
     Dates: start: 20200910
  4. PROBIOTIC [Concomitant]
     Active Substance: PROBIOTICS NOS
     Dates: start: 20190904
  5. ACETAMIN [Concomitant]
     Active Substance: ACETAMINOPHEN
     Dates: start: 20190904
  6. MULTIPLE VIT [Concomitant]
     Dates: start: 20190904
  7. VITAMIN D3. [Concomitant]
  8. GLATIRAMER [Suspect]
     Active Substance: GLATIRAMER
     Indication: MULTIPLE SCLEROSIS
     Dosage: ?          OTHER FREQUENCY:3 TIMES PER WEEK;?
     Route: 058
     Dates: start: 20190213
  9. BACLOFEN. [Concomitant]
     Active Substance: BACLOFEN
     Dates: start: 20190904
  10. CALCIUM [Concomitant]
     Active Substance: CALCIUM
     Dates: start: 20190904
  11. MIRTAZAPINE. [Concomitant]
     Active Substance: MIRTAZAPINE
     Dates: start: 20190904
  12. MODAFINIL. [Concomitant]
     Active Substance: MODAFINIL
     Dates: start: 20190904
  13. ASPIRIN. [Concomitant]
     Active Substance: ASPIRIN
     Dates: start: 20190904
  14. DIAZEPAM. [Concomitant]
     Active Substance: DIAZEPAM
     Dates: start: 20190904
  15. LEVOTHYROXIN [Concomitant]
     Active Substance: LEVOTHYROXINE
     Dates: start: 20190904
  16. TURMERIC [Concomitant]
     Active Substance: HERBALS\TURMERIC
     Dates: start: 20190904

REACTIONS (3)
  - Foot deformity [None]
  - Exostosis [None]
  - Dehydration [None]
